FAERS Safety Report 23625420 (Version 1)
Quarter: 2024Q1

REPORT INFORMATION
  Report Type: Spontaneous
  Country: FR (occurrence: FR)
  Receive Date: 20240313
  Receipt Date: 20240313
  Transmission Date: 20240410
  Serious: Yes (Other)
  Sender: FDA-Public Use
  Company Number: None

PATIENT

DRUGS (5)
  1. VOCABRIA [Suspect]
     Active Substance: CABOTEGRAVIR SODIUM
     Indication: HIV infection
     Dosage: 600 MG, MO
     Route: 030
     Dates: start: 20230105, end: 20230202
  2. VOCABRIA [Suspect]
     Active Substance: CABOTEGRAVIR SODIUM
     Dosage: 400 MG, MO
     Route: 030
     Dates: start: 20230202
  3. VOCABRIA [Suspect]
     Active Substance: CABOTEGRAVIR SODIUM
  4. RILPIVIRINE [Suspect]
     Active Substance: RILPIVIRINE
     Indication: Product used for unknown indication
     Dosage: 900 MG, MO
     Route: 030
     Dates: start: 20230105, end: 20230202
  5. RILPIVIRINE [Suspect]
     Active Substance: RILPIVIRINE
     Dosage: 600 MG, MO
     Route: 030
     Dates: start: 20230202

REACTIONS (3)
  - Drug level decreased [Not Recovered/Not Resolved]
  - Injection site discharge [Recovered/Resolved]
  - Wrong technique in product usage process [Recovered/Resolved]

NARRATIVE: CASE EVENT DATE: 20230725
